FAERS Safety Report 4656427-6 (Version None)
Quarter: 2005Q2

REPORT INFORMATION
  Report Type: 
  Country: None (occurrence: None)
  Receive Date: 20050504
  Receipt Date: 20050426
  Transmission Date: 20051028
  Serious: Yes (Death)
  Sender: FDA-Public Use
  Company Number: 2005AP02267

PATIENT
  Age: 65 Year
  Sex: Male
  Weight: 38.5 kg

DRUGS (9)
  1. IRESSA [Suspect]
     Indication: LUNG ADENOCARCINOMA
     Dosage: 250 MG DAILY PO
     Route: 048
     Dates: start: 20030618, end: 20030717
  2. TAKEPRON [Concomitant]
  3. MAGNESIUM OXIDE [Concomitant]
  4. MUCOSTA [Concomitant]
  5. CARBOPLATIN [Concomitant]
  6. GEMCITABINE [Concomitant]
  7. CISPLATIN [Concomitant]
  8. MITOMYCIN [Concomitant]
  9. VINORELBINE TARTRATE [Concomitant]

REACTIONS (5)
  - ACUTE RESPIRATORY DISTRESS SYNDROME [None]
  - DIFFUSE ALVEOLAR DAMAGE [None]
  - DRUG INEFFECTIVE [None]
  - INTERSTITIAL LUNG DISEASE [None]
  - RESPIRATORY FAILURE [None]
